FAERS Safety Report 24466938 (Version 2)
Quarter: 2024Q4

REPORT INFORMATION
  Report Type: Spontaneous
  Country: US (occurrence: US)
  Receive Date: 20241018
  Receipt Date: 20241205
  Transmission Date: 20250115
  Serious: Yes (Other)
  Sender: DOMPE FARMACEUTICI
  Company Number: US-FARMAPROD-202410-3435

PATIENT
  Age: 74 Year
  Sex: Female

DRUGS (15)
  1. OXERVATE [Suspect]
     Active Substance: CENEGERMIN-BKBJ
     Indication: Neurotrophic keratopathy
     Route: 047
  2. OXERVATE [Suspect]
     Active Substance: CENEGERMIN-BKBJ
     Route: 047
     Dates: start: 20240829
  3. OXERVATE [Suspect]
     Active Substance: CENEGERMIN-BKBJ
  4. OXERVATE [Suspect]
     Active Substance: CENEGERMIN-BKBJ
  5. OXERVATE [Suspect]
     Active Substance: CENEGERMIN-BKBJ
  6. OXERVATE [Suspect]
     Active Substance: CENEGERMIN-BKBJ
     Route: 047
     Dates: start: 20240422, end: 20240619
  7. OFLOXACIN [Concomitant]
     Active Substance: OFLOXACIN
  8. NAC [Concomitant]
  9. CHROMIUM PICOLINATE [Concomitant]
     Active Substance: CHROMIUM PICOLINATE
  10. VITAMIN D3 [Concomitant]
     Active Substance: CHOLECALCIFEROL
  11. VITAMIN C [Concomitant]
     Active Substance: ASCORBIC ACID
  12. UNSPECIFIED INGREDIENT [Concomitant]
     Active Substance: UNSPECIFIED INGREDIENT
  13. MAGNESIUM [Concomitant]
     Active Substance: MAGNESIUM
  14. BIOTIN [Concomitant]
     Active Substance: BIOTIN
  15. CINNAMON [Concomitant]
     Active Substance: CINNAMON

REACTIONS (4)
  - Wrist fracture [Recovering/Resolving]
  - Fall [Recovered/Resolved with Sequelae]
  - Product dose omission issue [Unknown]
  - Sinusitis [Unknown]

NARRATIVE: CASE EVENT DATE: 20240928
